FAERS Safety Report 19519314 (Version 1)
Quarter: 2021Q3

REPORT INFORMATION
  Report Type: Spontaneous
  Country: US (occurrence: US)
  Receive Date: 20210712
  Receipt Date: 20210712
  Transmission Date: 20211014
  Serious: No
  Sender: FDA-Public Use
  Company Number: None

PATIENT
  Age: 45 Year
  Sex: Male

DRUGS (1)
  1. DICLOFENAC (DICLOFENAC NA 1% GEL, TOP) [Suspect]
     Active Substance: DICLOFENAC SODIUM
     Indication: PAIN
     Route: 061
     Dates: start: 20201005, end: 20210223

REACTIONS (1)
  - Loss of consciousness [None]

NARRATIVE: CASE EVENT DATE: 20210111
